FAERS Safety Report 9228922 (Version 1)
Quarter: 2013Q2

REPORT INFORMATION
  Report Type: Spontaneous
  Country: IN (occurrence: IN)
  Receive Date: 20130412
  Receipt Date: 20130412
  Transmission Date: 20140414
  Serious: Yes (Death, Hospitalization)
  Sender: FDA-Public Use
  Company Number: PHHY2013IN035557

PATIENT
  Age: 50 Year
  Sex: Male

DRUGS (1)
  1. PREDNISOLONE [Suspect]
     Indication: DEMYELINATING POLYNEUROPATHY
     Dosage: 40 MG, QD

REACTIONS (7)
  - Strongyloidiasis [Fatal]
  - Diarrhoea [Fatal]
  - Abdominal pain [Fatal]
  - Vomiting [Fatal]
  - Sepsis [Fatal]
  - Depressed level of consciousness [Unknown]
  - Hypotension [Unknown]
